FAERS Safety Report 7996025-X (Version None)
Quarter: 2011Q4

REPORT INFORMATION
  Report Type: 
  Country: None (occurrence: None)
  Receive Date: 20111220
  Receipt Date: 20111209
  Transmission Date: 20120403
  Serious: Yes (Hospitalization, Other)
  Sender: FDA-Public Use
  Company Number: PHHY2011CA106329

PATIENT
  Sex: Male

DRUGS (4)
  1. FLOMAX [Concomitant]
  2. CLOZARIL [Suspect]
     Indication: SCHIZOPHRENIA
     Dosage: 375 MG, UNK
     Route: 048
     Dates: start: 20050310
  3. CLOZARIL [Suspect]
     Dates: start: 20100310
  4. VALPROATE SODIUM [Concomitant]

REACTIONS (2)
  - DEPRESSIVE SYMPTOM [None]
  - OCULOGYRIC CRISIS [None]
